FAERS Safety Report 8095818-0 (Version None)
Quarter: 2012Q1

REPORT INFORMATION
  Report Type: 
  Country: None (occurrence: None)
  Receive Date: 20120129
  Receipt Date: 20111222
  Transmission Date: 20120608
  Serious: No
  Sender: FDA-Public Use
  Company Number: US-ABBOTT-11P-163-0886143-00

PATIENT
  Sex: Female
  Weight: 116.22 kg

DRUGS (14)
  1. MULTI-VITAMINS [Concomitant]
     Route: 048
     Dates: start: 20110707, end: 20111130
  2. FLU VACCINE [Concomitant]
     Indication: INFLUENZA
     Dosage: 1 SHOT
     Dates: start: 20110916, end: 20110916
  3. HUMIRA [Suspect]
     Dates: start: 20110630, end: 20111130
  4. TEA [Concomitant]
     Route: 048
     Dates: start: 20110630, end: 20110831
  5. MULTI-VITAMINS [Concomitant]
     Indication: PRODUCT USED FOR UNKNOWN INDICATION
     Route: 048
     Dates: start: 20110520, end: 20110706
  6. FOLIC ACID [Concomitant]
     Indication: PRODUCT USED FOR UNKNOWN INDICATION
     Route: 048
     Dates: start: 20110520, end: 20110923
  7. METHOTREXATE [Concomitant]
     Indication: ANKYLOSING SPONDYLITIS
     Route: 048
     Dates: start: 20090101, end: 20110410
  8. HUMIRA [Suspect]
     Indication: ANKYLOSING SPONDYLITIS
     Dates: start: 20110225, end: 20110504
  9. TEA [Concomitant]
     Indication: PRODUCT USED FOR UNKNOWN INDICATION
     Dosage: 1 SEVING 3-4 TIMES PER WEEK
     Route: 048
     Dates: start: 20110225, end: 20110629
  10. ORAL CONTRACEPTIVE NOS [Concomitant]
     Indication: PRODUCT USED FOR UNKNOWN INDICATION
     Route: 048
     Dates: start: 20110225, end: 20110501
  11. TRAMADOL HCL [Concomitant]
     Indication: ANKYLOSING SPONDYLITIS
     Dosage: 5 TOTAL
     Route: 048
     Dates: start: 20110922, end: 20111007
  12. CALCIUM [Concomitant]
     Indication: PRODUCT USED FOR UNKNOWN INDICATION
     Route: 048
     Dates: start: 20110801, end: 20111130
  13. LEUCOVORIN CALCIUM [Concomitant]
     Indication: DRUG TOXICITY PROPHYLAXIS
     Route: 048
     Dates: start: 20110603, end: 20110916
  14. TRAMADOL HCL [Concomitant]
     Indication: PAIN
     Route: 048
     Dates: start: 20111124, end: 20111130

REACTIONS (11)
  - BACK PAIN [None]
  - ALLERGY TO ARTHROPOD BITE [None]
  - NAUSEA [None]
  - URINARY TRACT INFECTION [None]
  - HEADACHE [None]
  - GASTROOESOPHAGEAL REFLUX DISEASE [None]
  - NASOPHARYNGITIS [None]
  - ABDOMINAL PAIN UPPER [None]
  - INTERVERTEBRAL DISC PROTRUSION [None]
  - CONSTIPATION [None]
  - RESPIRATORY TRACT INFECTION [None]
